FAERS Safety Report 4845282-7 (Version None)
Quarter: 2005Q4

REPORT INFORMATION
  Report Type: 
  Country: None (occurrence: None)
  Receive Date: 20051129
  Receipt Date: 20051121
  Transmission Date: 20060501
  Serious: Yes (Hospitalization)
  Sender: FDA-Public Use
  Company Number: 217379

PATIENT
  Age: 45 Year
  Sex: Female

DRUGS (11)
  1. XOLAIR [Suspect]
     Indication: ASTHMA
     Dosage: 300 MG, Q2W
     Dates: start: 20050715
  2. ALBUTEROL (ALBUTEROL, ALBUTEROL SULFATE) [Concomitant]
  3. ALDOSTERONE (ALDOSTERONE) [Concomitant]
  4. ASPIRIN [Concomitant]
  5. DIGOXIN [Concomitant]
  6. LASIX [Concomitant]
  7. ATROVENT [Concomitant]
  8. LIPITOR [Concomitant]
  9. LISINOPRIL [Concomitant]
  10. PROTONIX [Concomitant]
  11. PREDNISONE [Concomitant]

REACTIONS (6)
  - BRONCHOSPASM [None]
  - CARDIAC DISORDER [None]
  - COLLAPSE OF LUNG [None]
  - HYPERSENSITIVITY [None]
  - PULMONARY OEDEMA [None]
  - RESPIRATORY FAILURE [None]
